FAERS Safety Report 9239190 (Version 1)
Quarter: 2013Q2

REPORT INFORMATION
  Report Type: Spontaneous
  Country: US (occurrence: US)
  Receive Date: 20130418
  Receipt Date: 20130418
  Transmission Date: 20140414
  Serious: No
  Sender: FDA-Public Use
  Company Number: US-B.I. PHARMACEUTICALS,INC./RIDGEFIELD-2013-BI-10497BP

PATIENT
  Age: 84 Year
  Sex: Female
  Weight: 67 kg

DRUGS (4)
  1. PRADAXA [Suspect]
     Indication: ATRIAL FIBRILLATION
     Dosage: 220 MG
     Route: 048
     Dates: start: 20130321, end: 20130410
  2. PRADAXA [Suspect]
     Route: 048
     Dates: start: 20130410, end: 20130410
  3. METOPROLOL [Concomitant]
  4. ASPIRIN [Concomitant]
     Indication: ATRIAL FIBRILLATION

REACTIONS (2)
  - Oedema peripheral [Not Recovered/Not Resolved]
  - Skin discolouration [Not Recovered/Not Resolved]
